FAERS Safety Report 9296338 (Version 1)
Quarter: 2013Q2

REPORT INFORMATION
  Report Type: Spontaneous
  Country: FR (occurrence: FR)
  Receive Date: 20130517
  Receipt Date: 20130517
  Transmission Date: 20140414
  Serious: Yes (Other)
  Sender: FDA-Public Use
  Company Number: FR-WATSON-2013-08982

PATIENT
  Age: 77 Year
  Sex: Male

DRUGS (2)
  1. PREGABALIN (WATSON LABORATORIES) [Suspect]
     Indication: HERPES ZOSTER
     Dosage: UNK
     Route: 065
     Dates: start: 200904
  2. CODEINE-ACETAMINOPHEN (UNKNOWN) [Suspect]
     Indication: HERPES ZOSTER
     Dosage: UNK
     Route: 065
     Dates: start: 200904

REACTIONS (1)
  - Disorientation [Recovered/Resolved]
